FAERS Safety Report 5289527-0 (Version None)
Quarter: 2007Q2

REPORT INFORMATION
  Report Type: 
  Country: None (occurrence: None)
  Receive Date: 20070406
  Receipt Date: 20070328
  Transmission Date: 20071010
  Serious: Yes (Hospitalization)
  Sender: FDA-Public Use
  Company Number: MX-GILEAD-2007-0011809

PATIENT
  Sex: Male
  Weight: 54 kg

DRUGS (3)
  1. EMTRIVA [Suspect]
     Indication: HIV INFECTION
     Route: 048
     Dates: start: 20070310, end: 20070312
  2. VIREAD [Suspect]
     Indication: HIV INFECTION
     Route: 048
     Dates: start: 20070310, end: 20070312
  3. EFAVIRENZ [Concomitant]
     Route: 048
     Dates: start: 20070310, end: 20070312

REACTIONS (1)
  - PANCREATITIS ACUTE [None]
